FAERS Safety Report 10143442 (Version 1)
Quarter: 2014Q2

REPORT INFORMATION
  Report Type: Spontaneous
  Country: FR (occurrence: FR)
  Receive Date: 20140430
  Receipt Date: 20140430
  Transmission Date: 20141212
  Serious: Yes (Death)
  Sender: FDA-Public Use
  Company Number: FR-MERCK-1404FRA012646

PATIENT
  Age: 72 Year
  Sex: Male

DRUGS (4)
  1. SINEMET 100 MG / 10 MG COMPRIME SECABLE [Suspect]
     Indication: PARKINSON^S DISEASE
     Dosage: 100 MG, 5 TIMES PER DAY
     Route: 048
     Dates: end: 20140317
  2. APOMORPHINE HYDROCHLORIDE [Suspect]
     Indication: PARKINSON^S DISEASE
     Dosage: 30000 MICROGRAM, TID
     Route: 058
     Dates: start: 201204, end: 20140317
  3. STALEVO [Suspect]
     Indication: PARKINSON^S DISEASE
     Dosage: 1 DF, TID
     Dates: end: 20140317
  4. REQUIP [Suspect]
     Dosage: 8 MG, QD
     Dates: start: 200709, end: 20140215

REACTIONS (2)
  - Hypersexuality [Fatal]
  - Completed suicide [Fatal]
